FAERS Safety Report 16148506 (Version 1)
Quarter: 2019Q2

REPORT INFORMATION
  Report Type: Report from Study
  Country: None (occurrence: BR)
  Receive Date: 20190402
  Receipt Date: 20190402
  Transmission Date: 20190711
  Serious: Yes (Other)
  Sender: FDA-Public Use
  Company Number: BR-ABBVIE-18K-020-2517510-00

PATIENT
  Sex: Female
  Weight: 45 kg

DRUGS (2)
  1. HUMIRA [Suspect]
     Active Substance: ADALIMUMAB
     Route: 058
     Dates: start: 2018, end: 201812
  2. HUMIRA [Suspect]
     Active Substance: ADALIMUMAB
     Indication: ANKYLOSING SPONDYLITIS
     Route: 058
     Dates: start: 20180227, end: 20180918

REACTIONS (7)
  - Apparent death [Unknown]
  - Infection [Unknown]
  - Urinary tract infection [Unknown]
  - Weight decreased [Unknown]
  - Pyrexia [Unknown]
  - Asthenia [Unknown]
  - Dysstasia [Unknown]

NARRATIVE: CASE EVENT DATE: 2018
